FAERS Safety Report 19025884 (Version 1)
Quarter: 2021Q1

REPORT INFORMATION
  Report Type: Spontaneous
  Country: US (occurrence: US)
  Receive Date: 20210317
  Receipt Date: 20210317
  Transmission Date: 20210420
  Serious: Yes (Hospitalization)
  Sender: FDA-Public Use
  Company Number: None

PATIENT
  Age: 28 Year
  Sex: Male
  Weight: 56 kg

DRUGS (4)
  1. DAUNORUBICIN 40MG [Suspect]
     Active Substance: DAUNORUBICIN HYDROCHLORIDE
     Dates: end: 20210302
  2. VINCRISTINE SULFATE 2 MG [Suspect]
     Active Substance: VINCRISTINE SULFATE
     Dates: end: 20210302
  3. CYTARABINE 70 MG [Suspect]
     Active Substance: CYTARABINE
     Dates: end: 20210302
  4. DEXAMETHASONE 40MG [Suspect]
     Active Substance: DEXAMETHASONE
     Dates: end: 20210304

REACTIONS (7)
  - Disseminated intravascular coagulation [None]
  - Cardiac discomfort [None]
  - Intracranial hypotension [None]
  - Headache [None]
  - Epistaxis [None]
  - Subdural haemorrhage [None]
  - Computerised tomogram head abnormal [None]

NARRATIVE: CASE EVENT DATE: 20210304
